FAERS Safety Report 8367525-8 (Version None)
Quarter: 2012Q2

REPORT INFORMATION
  Report Type: 
  Country: None (occurrence: None)
  Receive Date: 20120517
  Receipt Date: 20120514
  Transmission Date: 20120825
  Serious: Yes (Hospitalization)
  Sender: FDA-Public Use
  Company Number: US-BAYER-2012-048196

PATIENT
  Age: 37 Year
  Sex: Female
  Weight: 87.982 kg

DRUGS (11)
  1. YAZ [Suspect]
     Route: 048
  2. ATENOLOL [Concomitant]
     Dosage: 25 MG, BID
  3. DESONIDE [Concomitant]
  4. HYDROCODONE BITARTRATE AND ACETAMINOPHEN [Concomitant]
     Dosage: 5/325 MG
     Dates: start: 20111220
  5. LEVOTHYROXINE SODIUM [Concomitant]
     Dosage: 125 ?G, QD
  6. CEFDINIR [Concomitant]
     Dosage: 300 MG, UNK
     Dates: start: 20120105
  7. ALLEGRA [Concomitant]
     Dosage: 180 MG, QD
  8. TRAZODONE HCL [Concomitant]
     Dosage: 100 MG, HS
  9. CYCLOBENZAPRINE [Concomitant]
     Dosage: 10 MG, UNK
     Dates: start: 20120120
  10. CYMBALTA [Concomitant]
     Dosage: 60 MG, QD
  11. CLOTRIMAZOLE [Concomitant]
     Dosage: UNK
     Dates: start: 20120112

REACTIONS (1)
  - DEEP VEIN THROMBOSIS [None]
